FAERS Safety Report 10013202 (Version 2)
Quarter: 2014Q1

REPORT INFORMATION
  Report Type: Spontaneous
  Country: US (occurrence: US)
  Receive Date: 20140314
  Receipt Date: 20140314
  Transmission Date: 20141002
  Serious: Yes (Hospitalization)
  Sender: FDA-Public Use
  Company Number: US-BAXTER-2014BAX012078

PATIENT
  Sex: Female

DRUGS (12)
  1. DIANEAL LOW CALCIUM (ULTRABAG) [Suspect]
     Indication: PERITONEAL DIALYSIS
     Route: 033
     Dates: start: 2010
  2. DIANEAL LOW CALCIUM (ULTRABAG) [Suspect]
     Route: 033
     Dates: start: 201402
  3. AMLODIPINE [Concomitant]
     Indication: HYPERTENSION
     Route: 048
  4. COREG [Concomitant]
     Indication: HYPERTENSION
     Route: 048
  5. CLONIDINE [Concomitant]
     Indication: HYPERTENSION
     Route: 048
  6. CLONIDINE [Concomitant]
     Route: 062
  7. DIOVAN [Concomitant]
     Indication: HYPERTENSION
     Route: 048
  8. DIOVAN [Concomitant]
     Route: 062
  9. HYDRALAZINE [Concomitant]
     Indication: HYPERTENSION
     Route: 048
  10. HYDRALAZINE [Concomitant]
     Route: 062
  11. LOSARTAN [Concomitant]
     Indication: HYPERTENSION
     Route: 048
  12. LOSARTAN [Concomitant]
     Route: 062

REACTIONS (3)
  - Hypertension [Recovering/Resolving]
  - Nausea [Recovered/Resolved]
  - Vomiting [Recovered/Resolved]
